FAERS Safety Report 7571864-8 (Version None)
Quarter: 2011Q2

REPORT INFORMATION
  Report Type: 
  Country: None (occurrence: None)
  Receive Date: 20110624
  Receipt Date: 20100430
  Transmission Date: 20111010
  Serious: No
  Sender: FDA-Public Use
  Company Number: A0857501A

PATIENT

DRUGS (3)
  1. VERAMYST [Suspect]
     Route: 045
  2. PEPCID [Concomitant]
  3. NEXIUM [Concomitant]

REACTIONS (1)
  - OROPHARYNGEAL PAIN [None]
